FAERS Safety Report 15760370 (Version 2)
Quarter: 2019Q1

REPORT INFORMATION
  Report Type: Report from Study
  Country: US (occurrence: US)
  Receive Date: 20181226
  Receipt Date: 20190124
  Transmission Date: 20190417
  Serious: Yes (Death, Hospitalization, Other)
  Sender: FDA-Public Use
  Company Number: US-ALEXION PHARMACEUTICALS INC-A201816773

PATIENT
  Age: 62 Year
  Sex: Male

DRUGS (1)
  1. SOLIRIS [Suspect]
     Active Substance: ECULIZUMAB
     Indication: ATYPICAL HAEMOLYTIC URAEMIC SYNDROME
     Dosage: 900 MG, UNK
     Route: 042
     Dates: start: 20181128

REACTIONS (22)
  - Mental status changes [Unknown]
  - Platelet count decreased [Unknown]
  - Disease progression [Fatal]
  - Thrombotic microangiopathy [Unknown]
  - White blood cell count decreased [Unknown]
  - Mean cell volume increased [Unknown]
  - Blood calcium decreased [Unknown]
  - Blood alkaline phosphatase increased [Unknown]
  - Blood urea increased [Unknown]
  - Systemic inflammatory response syndrome [Unknown]
  - Blood phosphorus decreased [Unknown]
  - Aspartate aminotransferase increased [Unknown]
  - Alanine aminotransferase increased [Unknown]
  - Intracranial mass [Fatal]
  - Haematocrit decreased [Unknown]
  - Hemiparesis [Unknown]
  - Pulmonary mass [Unknown]
  - Red cell distribution width increased [Unknown]
  - Lymphocyte count increased [Unknown]
  - Neutrophil count increased [Unknown]
  - Protein total decreased [Unknown]
  - Haemoglobin decreased [Unknown]

NARRATIVE: CASE EVENT DATE: 20181111
